FAERS Safety Report 20785594 (Version 2)
Quarter: 2024Q1

REPORT INFORMATION
  Report Type: Report from Study
  Country: JP (occurrence: JP)
  Receive Date: 20220504
  Receipt Date: 20240306
  Transmission Date: 20240409
  Serious: Yes (Other)
  Sender: FDA-Public Use
  Company Number: JP-CELLTRION INC.-2020JP024617

PATIENT

DRUGS (12)
  1. INFLIXIMAB-DYYB [Suspect]
     Active Substance: INFLIXIMAB-DYYB
     Indication: Crohn^s disease
     Dosage: 740 MG (WEIGHT: 74 KG)
     Route: 041
     Dates: start: 20181027, end: 20181027
  2. INFLIXIMAB-DYYB [Suspect]
     Active Substance: INFLIXIMAB-DYYB
     Dosage: 750 MG (WEIGHT: 75 KG)
     Route: 041
     Dates: start: 20181224, end: 20181224
  3. INFLIXIMAB-DYYB [Suspect]
     Active Substance: INFLIXIMAB-DYYB
     Dosage: 750 MG (WEIGHT: 75.4 KG)
     Route: 041
     Dates: start: 20190223, end: 20190223
  4. INFLIXIMAB-DYYB [Suspect]
     Active Substance: INFLIXIMAB-DYYB
     Dosage: 760 MG (WEIGHT: 75.5 KG)
     Route: 041
     Dates: start: 20190421, end: 20190421
  5. INFLIXIMAB-DYYB [Suspect]
     Active Substance: INFLIXIMAB-DYYB
     Dosage: 740 MG (WEIGHT: 74 KG)
     Route: 041
     Dates: start: 20191013, end: 20191013
  6. INFLIXIMAB-DYYB [Suspect]
     Active Substance: INFLIXIMAB-DYYB
     Dosage: 790 MG (WEIGHT: 78.5 KG)
     Route: 041
     Dates: start: 20201013, end: 20201013
  7. INFLIXIMAB-DYYB [Suspect]
     Active Substance: INFLIXIMAB-DYYB
     Dosage: 840 MG
     Route: 041
     Dates: start: 20211117, end: 20211117
  8. INFLIXIMAB-DYYB [Suspect]
     Active Substance: INFLIXIMAB-DYYB
     Dosage: 770 MG (WEIGHT: 77.4 KG)
     Route: 041
     Dates: start: 20221127, end: 20221127
  9. INFLIXIMAB-DYYB [Suspect]
     Active Substance: INFLIXIMAB-DYYB
     Dosage: 800 MG (WEIGHT: 80 KG)
     Route: 041
     Dates: start: 20240107, end: 20240107
  10. AZATHIOPRINE [Concomitant]
     Active Substance: AZATHIOPRINE
     Dosage: 50 MG, QD
     Route: 048
  11. MESALAMINE [Concomitant]
     Active Substance: MESALAMINE
     Dosage: 1000 MG, QD
     Route: 048
     Dates: start: 20180926
  12. MESALAMINE [Concomitant]
     Active Substance: MESALAMINE
     Dosage: 2000 MG, QD
     Route: 048
     Dates: start: 20180926

REACTIONS (13)
  - Intestinal obstruction [Recovered/Resolved]
  - COVID-19 [Recovered/Resolved]
  - Rectal polyp [Recovered/Resolved]
  - Hyperlipidaemia [Not Recovered/Not Resolved]
  - Heat illness [Recovered/Resolved]
  - Nasopharyngitis [Recovered/Resolved]
  - Cough [Unknown]
  - Hypertension [Not Recovered/Not Resolved]
  - Contusion [Unknown]
  - Hepatic function abnormal [Not Recovered/Not Resolved]
  - Overdose [Unknown]
  - Intentional product use issue [Unknown]
  - Incorrect drug administration rate [Unknown]

NARRATIVE: CASE EVENT DATE: 20190131
